FAERS Safety Report 13953665 (Version 2)
Quarter: 2018Q1

REPORT INFORMATION
  Report Type: Spontaneous
  Country: US (occurrence: US)
  Receive Date: 20170911
  Receipt Date: 20180131
  Transmission Date: 20180508
  Serious: Yes (Hospitalization)
  Sender: FDA-Public Use
  Company Number: US-PFIZER INC-2017391332

PATIENT
  Age: 63 Year
  Sex: Female
  Weight: 77.11 kg

DRUGS (7)
  1. CARBOPLATIN. [Suspect]
     Active Substance: CARBOPLATIN
     Indication: OVARIAN CANCER
     Dosage: UNK (WEEKLY CHEMO ON PORT)
     Dates: start: 201705, end: 201710
  2. PACLITAXEL. [Suspect]
     Active Substance: PACLITAXEL
     Dosage: UNK, CYCLIC (INJECTION THRU PORT, D1, 8,15Q21D)
     Dates: start: 201705, end: 201710
  3. ONDANSETRON [Concomitant]
     Active Substance: ONDANSETRON
     Indication: ABDOMINAL DISCOMFORT
     Dosage: 8 MG, UNK
     Dates: start: 201705, end: 201711
  4. PROCHLORPERAZINE. [Concomitant]
     Active Substance: PROCHLORPERAZINE
     Indication: NAUSEA
     Dosage: 10 MG, UNK
     Dates: start: 201705, end: 201711
  5. ONDANSETRON [Concomitant]
     Active Substance: ONDANSETRON
     Indication: NAUSEA
  6. LIDOCAINE/PRILOCAINE [Concomitant]
     Dosage: 25 (UNSPECIFIED UNIT)
     Dates: start: 201705
  7. NEULASTA [Concomitant]
     Active Substance: PEGFILGRASTIM
     Indication: FULL BLOOD COUNT DECREASED
     Dosage: 6 MG, WEEKLY (SHOT)
     Dates: start: 201708, end: 201710

REACTIONS (2)
  - Alopecia [Recovering/Resolving]
  - Malaise [Recovered/Resolved]

NARRATIVE: CASE EVENT DATE: 2017
